FAERS Safety Report 8840306 (Version 1)
Quarter: 2012Q4

REPORT INFORMATION
  Report Type: 
  Country: GB (occurrence: GB)
  Receive Date: 20121015
  Receipt Date: 20121015
  Transmission Date: 20130627
  Serious: Yes (Life-Threatening, Other)
  Sender: FDA-Public Use
  Company Number: GB-ASTRAZENECA-2012SE78169

PATIENT
  Age: 77 Year
  Sex: Male
  Weight: 90 kg

DRUGS (10)
  1. LISINOPRIL [Suspect]
     Indication: HYPERTENSION
     Route: 048
     Dates: end: 20120927
  2. AMLODIPINE [Suspect]
     Indication: HYPERTENSION
     Route: 048
     Dates: end: 20120927
  3. ALLOPURINOL [Concomitant]
  4. ATENOLOL [Concomitant]
  5. GLICLAZIDE [Concomitant]
  6. METFORMIN [Concomitant]
  7. PIOGLITAZONE [Concomitant]
  8. INDAPAMIDE [Concomitant]
  9. SIMVASTATIN [Concomitant]
  10. DOXAZOSIN [Concomitant]

REACTIONS (4)
  - Respiratory distress [Recovering/Resolving]
  - Dysphonia [Recovering/Resolving]
  - Angioedema [Recovering/Resolving]
  - Swollen tongue [Recovering/Resolving]
